FAERS Safety Report 6344360-3 (Version None)
Quarter: 2009Q3

REPORT INFORMATION
  Report Type: 
  Country: None (occurrence: None)
  Receive Date: 20090821
  Receipt Date: 20090501
  Transmission Date: 20100115
  Serious: No
  Sender: FDA-Public Use
  Company Number: 8045685

PATIENT
  Age: 42 Year
  Sex: Male
  Weight: 92.7 kg

DRUGS (4)
  1. CIMZIA [Suspect]
     Indication: CROHN'S DISEASE
     Dosage: 400 MG 3/W SC
     Route: 058
     Dates: start: 20090201
  2. ASACOL [Concomitant]
  3. MERCAPTOPURINE [Concomitant]
  4. PREDNISONE TAB [Concomitant]

REACTIONS (8)
  - ABDOMINAL PAIN [None]
  - BACK PAIN [None]
  - CONTUSION [None]
  - HYPOAESTHESIA [None]
  - PARAESTHESIA [None]
  - SENSITIVITY OF TEETH [None]
  - THERAPY REGIMEN CHANGED [None]
  - VOMITING [None]
